FAERS Safety Report 19804548 (Version 1)
Quarter: 2021Q3

REPORT INFORMATION
  Report Type: Spontaneous
  Country: FR (occurrence: FR)
  Receive Date: 20210908
  Receipt Date: 20210908
  Transmission Date: 20211014
  Serious: Yes (Other)
  Sender: FDA-Public Use
  Company Number: FR-PFIZER INC-202101122678

PATIENT
  Age: 32 Year
  Sex: Male

DRUGS (6)
  1. RIVOTRIL [Suspect]
     Active Substance: CLONAZEPAM
     Dosage: 1 DF, 1X/DAY
     Route: 048
     Dates: start: 20210602, end: 20210610
  2. COCAINE [Suspect]
     Active Substance: COCAINE
     Dosage: CONSUMPTION AMOUNT NOT SPECIFIED
     Route: 045
  3. LYRICA [Suspect]
     Active Substance: PREGABALIN
     Dosage: 1 UP TO 7 DF, DAILY
     Route: 048
     Dates: start: 2020
  4. CANNABIS [Suspect]
     Active Substance: CANNABIS SATIVA SUBSP. INDICA TOP
     Dosage: AT A TIME USED TO SMOKE 20 JOINTS DAILY
     Route: 055
     Dates: start: 2006
  5. ALCOHOL. [Concomitant]
     Active Substance: ALCOHOL
     Dosage: 0.5 DF ( A HALF OF A BOTTLE)
     Route: 048
     Dates: start: 202106
  6. CANNABIS [Suspect]
     Active Substance: CANNABIS SATIVA SUBSP. INDICA TOP
     Dosage: 1 DF, 2X/DAY IN THE MORNING AND IN THE EVENING
     Route: 055

REACTIONS (4)
  - Drug dependence [Recovering/Resolving]
  - Withdrawal syndrome [Recovering/Resolving]
  - Behaviour disorder [Recovered/Resolved]
  - Intentional product misuse [Recovering/Resolving]

NARRATIVE: CASE EVENT DATE: 2020
